FAERS Safety Report 9713427 (Version 4)
Quarter: 2014Q4

REPORT INFORMATION
  Report Type: Report from Study
  Country: CN (occurrence: CN)
  Receive Date: 20131126
  Receipt Date: 20141219
  Transmission Date: 20150529
  Serious: Yes (Hospitalization)
  Sender: FDA-Public Use
  Company Number: CN-SA-2013SA119168

PATIENT
  Age: 31 Year
  Sex: Female
  Weight: 55 kg

DRUGS (1)
  1. STUDY MEDICATION NOT GIVEN [Suspect]
     Active Substance: UNSPECIFIED INGREDIENT
     Indication: BREAST NEOPLASM

REACTIONS (1)
  - Inner ear inflammation [Recovered/Resolved]

NARRATIVE: CASE EVENT DATE: 20130321
